FAERS Safety Report 6419550-1 (Version None)
Quarter: 2009Q4

REPORT INFORMATION
  Report Type: 
  Country: None (occurrence: None)
  Receive Date: 20091029
  Receipt Date: 20090605
  Transmission Date: 20100525
  Serious: Yes (Other)
  Sender: FDA-Public Use
  Company Number: GR-JNJFOC-20091007555

PATIENT

DRUGS (4)
  1. KETOCONAZOLE [Suspect]
     Indication: PROSTATE CANCER
     Route: 048
  2. DOCETAXEL [Suspect]
     Indication: PROSTATE CANCER
     Route: 042
  3. DOXORUBICIN HCL [Suspect]
     Indication: PROSTATE CANCER
     Route: 042
  4. HYDROCORTISONE [Concomitant]
     Indication: STEROID THERAPY
     Dosage: 20 MG EVERY MORNING AND 10 MG EVERY EVENING
     Route: 065

REACTIONS (3)
  - HEPATOTOXICITY [None]
  - NEPHROPATHY TOXIC [None]
  - OFF LABEL USE [None]
